FAERS Safety Report 4496798-7 (Version None)
Quarter: 2004Q4

REPORT INFORMATION
  Report Type: 
  Country: None (occurrence: None)
  Receive Date: 20041109
  Receipt Date: 20041028
  Transmission Date: 20050328
  Serious: Yes (Hospitalization)
  Sender: FDA-Public Use
  Company Number: GB-MERCK-0410GBR00325

PATIENT
  Age: 78 Year
  Sex: Female

DRUGS (6)
  1. ZOCOR [Suspect]
     Indication: BLOOD CHOLESTEROL INCREASED
     Route: 048
     Dates: start: 20040824, end: 20041007
  2. ZOCOR [Suspect]
     Route: 048
     Dates: end: 20040823
  3. IMIPRAMINE HYDROCHLORIDE [Concomitant]
     Route: 048
  4. NIFEDIPINE [Concomitant]
     Route: 048
  5. ACETAMINOPHEN AND CODEINE PHOSPHATE [Concomitant]
     Route: 048
  6. RANITIDINE [Concomitant]
     Route: 048

REACTIONS (2)
  - ABASIA [None]
  - MYOSITIS [None]
